FAERS Safety Report 16986575 (Version 1)
Quarter: 2019Q4

REPORT INFORMATION
  Report Type: Spontaneous
  Country: US (occurrence: US)
  Receive Date: 20191101
  Receipt Date: 20191101
  Transmission Date: 20200122
  Serious: No
  Sender: FDA-Public Use
  Company Number: US-TEVA-2019-US-1132623

PATIENT
  Age: 82 Year
  Sex: Female

DRUGS (1)
  1. ATENOLOL TABLETS USP 50MG (ATENOLOL) [Suspect]
     Active Substance: ATENOLOL
     Route: 065

REACTIONS (1)
  - Heart rate irregular [Unknown]
